FAERS Safety Report 24565370 (Version 1)
Quarter: 2024Q4

REPORT INFORMATION
  Report Type: Spontaneous
  Country: RO (occurrence: RO)
  Receive Date: 20241030
  Receipt Date: 20241030
  Transmission Date: 20250115
  Serious: Yes (Other)
  Sender: RANBAXY
  Company Number: RO-SUN PHARMACEUTICAL INDUSTRIES LTD-2024RR-476001

PATIENT
  Age: 48 Year
  Sex: Female
  Weight: 85 kg

DRUGS (6)
  1. ASPIRIN [Suspect]
     Active Substance: ASPIRIN
     Indication: Product used for unknown indication
     Dosage: 75 MG/DAY
     Route: 065
     Dates: start: 20230830, end: 20230903
  2. ASPIRIN [Suspect]
     Active Substance: ASPIRIN
     Dosage: 1/2 TABLET OF ASPENTER 75 MG PER DAY
     Route: 065
     Dates: start: 20230904, end: 20230905
  3. OMERAN [Concomitant]
     Indication: Product used for unknown indication
     Dosage: UNK
     Route: 065
  4. CLORZOXAZONA [Concomitant]
     Indication: Product used for unknown indication
     Dosage: UNK
     Route: 065
  5. ROSUVASTATIN CALCIUM [Concomitant]
     Active Substance: ROSUVASTATIN CALCIUM
     Indication: Product used for unknown indication
     Dosage: UNK
     Route: 065
  6. LORAZEPAM [Concomitant]
     Active Substance: LORAZEPAM
     Indication: Product used for unknown indication
     Dosage: UNK
     Route: 065
     Dates: start: 20230830, end: 20230831

REACTIONS (9)
  - Angina pectoris [Recovered/Resolved]
  - Headache [Recovered/Resolved]
  - Feeling abnormal [Unknown]
  - Pain in jaw [Recovering/Resolving]
  - Back pain [Unknown]
  - Chest pain [Recovering/Resolving]
  - Abdominal pain upper [Recovered/Resolved]
  - Facial pain [Recovered/Resolved]
  - Intentional product use issue [Unknown]

NARRATIVE: CASE EVENT DATE: 20230830
